FAERS Safety Report 10589073 (Version 3)
Quarter: 2015Q1

REPORT INFORMATION
  Report Type: Report from Study
  Country: IT (occurrence: IT)
  Receive Date: 20141118
  Receipt Date: 20150210
  Transmission Date: 20150720
  Serious: Yes (Death, Other)
  Sender: FDA-Public Use
  Company Number: IT-ROCHE-1488938

PATIENT

DRUGS (3)
  1. BENDAMUSTINE [Suspect]
     Active Substance: BENDAMUSTINE
     Indication: CHRONIC LYMPHOCYTIC LEUKAEMIA
     Dosage: 90 MG/M2 ON DAY 1 AND 2 EVERY 28 DAYS;  70 OR 80 MG/M2
     Route: 065
  2. RITUXIMAB [Suspect]
     Active Substance: RITUXIMAB
     Indication: CHRONIC LYMPHOCYTIC LEUKAEMIA
     Route: 042
  3. RITUXIMAB [Suspect]
     Active Substance: RITUXIMAB
     Route: 042

REACTIONS (7)
  - Thrombocytopenia [Unknown]
  - Infection [Fatal]
  - Depression [Unknown]
  - Skin toxicity [Unknown]
  - Anaemia [Unknown]
  - Hypersomnia [Unknown]
  - Neutropenia [Unknown]
